FAERS Safety Report 7435761-0 (Version None)
Quarter: 2011Q2

REPORT INFORMATION
  Report Type: 
  Country: None (occurrence: None)
  Receive Date: 20110425
  Receipt Date: 20110422
  Transmission Date: 20111010
  Serious: Yes (Other)
  Sender: FDA-Public Use
  Company Number: US-PFIZER INC-2011087952

PATIENT
  Age: 47 Year
  Sex: Male

DRUGS (1)
  1. FIBERCON [Suspect]
     Indication: FAECES HARD
     Dosage: 625 MG, UNKNOWN FREQUENCY
     Route: 048
     Dates: start: 20110422

REACTIONS (1)
  - DYSPNOEA [None]
